FAERS Safety Report 10103570 (Version 1)
Quarter: 2014Q2

REPORT INFORMATION
  Report Type: Spontaneous
  Country: BR (occurrence: BR)
  Receive Date: 20140424
  Receipt Date: 20140424
  Transmission Date: 20141212
  Serious: Yes (Other)
  Sender: FDA-Public Use
  Company Number: BR-ENDO PHARMACEUTICALS INC.-AVEE20140031

PATIENT
  Age: 78 Year
  Sex: Male
  Weight: 74 kg

DRUGS (6)
  1. AVEED [Suspect]
     Indication: BLOOD TESTOSTERONE DECREASED
     Dosage: UNKNOWN
     Route: 030
  2. AVEED [Suspect]
     Dosage: UNKNOWN
     Route: 030
  3. GALVUS [Concomitant]
     Indication: DIABETES MELLITUS
     Dosage: UNKNOWN
     Route: 065
  4. THIOCTACID [Concomitant]
     Indication: DIABETES MELLITUS
     Dosage: UNKNOWN
     Route: 065
     Dates: start: 2012
  5. GAMMAR [Concomitant]
     Indication: DIABETES MELLITUS
     Dosage: UNKNOWN
     Route: 065
     Dates: start: 2012
  6. GLIMEPIL [Concomitant]
     Indication: DIABETES MELLITUS
     Dosage: UNKNOWN
     Route: 065

REACTIONS (2)
  - Anaphylactic shock [Recovered/Resolved]
  - Inappropriate schedule of drug administration [Unknown]
